FAERS Safety Report 9635149 (Version 2)
Quarter: 2013Q4

REPORT INFORMATION
  Report Type: Spontaneous
  Country: NO (occurrence: None)
  Receive Date: 20131017
  Receipt Date: 20131211
  Transmission Date: 20140711
  Serious: Yes (Other)
  Sender: FDA-Public Use
  Company Number: FK201304553

PATIENT
  Age: 62 Year
  Sex: Male

DRUGS (6)
  1. PROPOFOL [Suspect]
     Indication: SEDATIVE THERAPY
  2. DEXDOR [Suspect]
     Indication: SEDATIVE THERAPY
     Dosage: DECREASED TO 0.3  MG/KG/H
  3. FENTANYL (FENTANYL) [Suspect]
     Indication: PRODUCT USED FOR UNKNOWN INDICATION
     Dosage: 50 UG, 1 IN 1 HR
  4. SOBRIL [Suspect]
     Indication: PRODUCT USED FOR UNKNOWN INDICATION
     Dosage: 10 TO 15  MG WHEN NEEDED
  5. HALDOL [Suspect]
     Indication: RESTLESSNESS
     Dosage: 2.5 MG, 1 IN 1 D INTRAVENOUS (NOT OTHERWISE SPECIFIED)
     Route: 042
  6. KETORAX [Suspect]
     Indication: PRODUCT USED FOR UNKNOWN INDICATION
     Route: 042

REACTIONS (6)
  - Restlessness [None]
  - Bradycardia [None]
  - Respiratory arrest [None]
  - Hypoventilation [None]
  - Dyspnoea [None]
  - Confusional state [None]
